FAERS Safety Report 8460019-0 (Version None)
Quarter: 2012Q2

REPORT INFORMATION
  Report Type: 
  Country: None (occurrence: None)
  Receive Date: 20120622
  Receipt Date: 20120619
  Transmission Date: 20120825
  Serious: Yes (Life-Threatening, Other)
  Sender: FDA-Public Use
  Company Number: PHHY2012IT051206

PATIENT
  Age: 39 Year
  Sex: Female

DRUGS (5)
  1. PREDNISOLONE [Concomitant]
     Indication: HODGKIN'S DISEASE
  2. IFOSFAMIDE [Concomitant]
     Indication: HODGKIN'S DISEASE
  3. GEMCITABINE [Concomitant]
     Indication: HODGKIN'S DISEASE
  4. VINORELBINE [Suspect]
     Indication: HODGKIN'S DISEASE
     Dosage: 35 MG, UNK
  5. VINBLASTINE SULFATE [Suspect]
     Dosage: 35 MG, UNK

REACTIONS (14)
  - HEPATOTOXICITY [None]
  - ABDOMINAL PAIN [None]
  - NEUROTOXICITY [None]
  - THROMBOCYTOPENIA [None]
  - ALANINE AMINOTRANSFERASE INCREASED [None]
  - ACCIDENTAL OVERDOSE [None]
  - COLITIS [None]
  - LEUKOPENIA [None]
  - MYALGIA [None]
  - DIARRHOEA [None]
  - NEUTROPENIA [None]
  - ILEUS PARALYTIC [None]
  - ABDOMINAL PAIN UPPER [None]
  - WRONG DRUG ADMINISTERED [None]
